FAERS Safety Report 23048013 (Version 7)
Quarter: 2024Q2

REPORT INFORMATION
  Report Type: Spontaneous
  Country: BR (occurrence: BR)
  Receive Date: 20231010
  Receipt Date: 20240603
  Transmission Date: 20240716
  Serious: Yes (Other)
  Sender: FDA-Public Use
  Company Number: BR-GLAXOSMITHKLINE-BR2023AMR135682

PATIENT

DRUGS (3)
  1. BENLYSTA [Suspect]
     Active Substance: BELIMUMAB
     Indication: Systemic lupus erythematosus
     Dosage: 800 MG, 400 MG X 2
     Route: 042
     Dates: start: 20230619
  2. BENLYSTA [Suspect]
     Active Substance: BELIMUMAB
     Dosage: UNK UNK, Q4W, 400 OF 4
     Route: 042
  3. IRON POLYMALTOSE [Suspect]
     Active Substance: IRON POLYMALTOSE
     Indication: Anaemia
     Dosage: 800 MG, 400 MG X 2
     Dates: start: 20230619

REACTIONS (5)
  - Ectopic pregnancy [Unknown]
  - Malaise [Unknown]
  - Exposure during pregnancy [Unknown]
  - Inappropriate schedule of product administration [Unknown]
  - Product dose omission issue [Unknown]

NARRATIVE: CASE EVENT DATE: 20230905
